FAERS Safety Report 17252826 (Version 4)
Quarter: 2020Q1

REPORT INFORMATION
  Report Type: Spontaneous
  Country: US (occurrence: US)
  Receive Date: 20200109
  Receipt Date: 20200219
  Transmission Date: 20200409
  Serious: Yes (Other)
  Sender: FDA-Public Use
  Company Number: US-JNJFOC-20200102953

PATIENT
  Sex: Female
  Weight: 104.42 kg

DRUGS (4)
  1. MIRAPEX [Concomitant]
     Active Substance: PRAMIPEXOLE DIHYDROCHLORIDE
     Indication: RESTLESS LEGS SYNDROME
     Route: 048
  2. TRINTELLIX [Suspect]
     Active Substance: VORTIOXETINE HYDROBROMIDE
     Indication: DEPRESSION
  3. SPRAVATO [Suspect]
     Active Substance: ESKETAMINE
     Indication: DEPRESSION
     Dates: start: 20191126, end: 20191216
  4. SPRAVATO [Suspect]
     Active Substance: ESKETAMINE
     Dates: start: 20191220, end: 20191220

REACTIONS (9)
  - Suicidal ideation [Unknown]
  - Suspiciousness [Unknown]
  - Therapeutic product effect decreased [Unknown]
  - Psychiatric symptom [Unknown]
  - Condition aggravated [Recovered/Resolved]
  - Agitation [Unknown]
  - Tremor [Unknown]
  - Depression [Unknown]
  - Blood pressure increased [Unknown]
